FAERS Safety Report 19578328 (Version 2)
Quarter: 2021Q4

REPORT INFORMATION
  Report Type: Report from Study
  Country: CN (occurrence: CN)
  Receive Date: 20210719
  Receipt Date: 20211216
  Transmission Date: 20220303
  Serious: Yes (Hospitalization)
  Sender: FDA-Public Use
  Company Number: CN-BRISTOL-MYERS SQUIBB COMPANY-BMS-2021-068600

PATIENT
  Age: 44 Year
  Sex: Male

DRUGS (1)
  1. NIVOLUMAB [Suspect]
     Active Substance: NIVOLUMAB
     Indication: Gastric cancer
     Dosage: 140 MILLIGRAM, Q2WK
     Route: 041
     Dates: start: 20210403

REACTIONS (2)
  - Discomfort [Unknown]
  - General physical health deterioration [Unknown]
